FAERS Safety Report 5188765-5 (Version None)
Quarter: 2006Q4

REPORT INFORMATION
  Report Type: 
  Country: None (occurrence: None)
  Receive Date: 20061215
  Receipt Date: 20061205
  Transmission Date: 20070319
  Serious: Yes (Other)
  Sender: FDA-Public Use
  Company Number: 2006EN000044

PATIENT
  Age: 34 Year
  Sex: Male
  Weight: 86.1834 kg

DRUGS (2)
  1. OPANA ER [Suspect]
     Indication: PAIN
     Dosage: 10 MG; Q12H; PO
     Route: 048
     Dates: start: 20061121, end: 20061124
  2. ULTRAM [Concomitant]

REACTIONS (2)
  - BLOOD GLUCOSE DECREASED [None]
  - CONVULSION [None]
